FAERS Safety Report 10670820 (Version 10)
Quarter: 2016Q4

REPORT INFORMATION
  Report Type: Spontaneous
  Country: US (occurrence: US)
  Receive Date: 20141223
  Receipt Date: 20161202
  Transmission Date: 20170206
  Serious: Yes (Life-Threatening, Hospitalization, Other)
  Sender: FDA-Public Use
  Company Number: US-PFIZER INC-2014350639

PATIENT
  Age: 64 Year
  Sex: Male
  Weight: 82 kg

DRUGS (18)
  1. LYRICA [Suspect]
     Active Substance: PREGABALIN
     Indication: NEUROPATHY PERIPHERAL
     Dosage: 150 MG, 3X/DAY (1 MORNING/1NOON/2 NIGHT)
     Route: 048
     Dates: start: 2005
  2. PNEUMOCOCCAL VACCINE POLYVALENT NOS [Concomitant]
     Active Substance: PNEUMOCOCCAL VACCINE POLYVALENT
     Indication: IMMUNISATION
     Dosage: 0.5 ML, UNK
     Dates: start: 20140128
  3. LYRICA [Suspect]
     Active Substance: PREGABALIN
     Dosage: 150 MG, 1X/DAY
     Route: 048
  4. DOXAZOSIN MESYLATE. [Concomitant]
     Active Substance: DOXAZOSIN MESYLATE
     Dosage: 2 MG, 1X/DAY
     Route: 048
  5. WARFARIN SODIUM. [Concomitant]
     Active Substance: WARFARIN SODIUM
     Dosage: 2.5 MG, UNK (AS DIRECTED ORALLY 2 DAYS PER WEEK OR AS DIRECTED)
     Route: 048
  6. METOPROLOL SUCCINATE. [Concomitant]
     Active Substance: METOPROLOL SUCCINATE
     Dosage: 25 MG, 1X/DAY
     Route: 048
  7. FLU [Concomitant]
     Active Substance: INFLUENZA VIRUS VACCINE
     Indication: IMMUNISATION
     Dosage: 0.5 ML, UNK
     Dates: start: 20160923
  8. FLU [Concomitant]
     Active Substance: INFLUENZA VIRUS VACCINE
     Dosage: 0.5 ML, UNK
     Dates: start: 20151007
  9. CLOBETASOL PROPIONATE. [Concomitant]
     Active Substance: CLOBETASOL PROPIONATE
     Dosage: 0.05 %, CYCLIC (1 APPLICATION TO AFFECTED AREA EXTERNALLY TWICE A DAY X 2 WEEKS, THEN 2 WEEKS OFF)
     Dates: start: 20151217
  10. LYRICA [Suspect]
     Active Substance: PREGABALIN
     Dosage: 150 MG, 4X/DAY
     Route: 048
  11. PRILOSEC [Concomitant]
     Active Substance: OMEPRAZOLE MAGNESIUM
     Dosage: 20 MG, 1X/DAY
     Route: 048
  12. LOTRISONE [Concomitant]
     Active Substance: BETAMETHASONE DIPROPIONATE\CLOTRIMAZOLE
     Dosage: UNK, 2X/DAY (BETAMETHASONE DIPROPIONATE: 0.05%; CLOTRIMAZOLE: 1%)
     Dates: start: 20160825, end: 20161123
  13. COUMADIN [Concomitant]
     Active Substance: WARFARIN SODIUM
     Dosage: 5 MG, 1X/DAY
     Route: 048
  14. LYRICA [Suspect]
     Active Substance: PREGABALIN
     Dosage: 50 MG, 4X/DAY (ONE IN THE MORNING, ONE AT NOON, TWO AT NIGHT)
     Route: 048
     Dates: end: 201501
  15. FLU [Concomitant]
     Active Substance: INFLUENZA VIRUS VACCINE
     Dosage: 0.5 ML, UNK
     Dates: start: 20141008
  16. FLU [Concomitant]
     Active Substance: INFLUENZA VIRUS VACCINE
     Dosage: 0.5 ML, UNK
     Dates: start: 20131015
  17. PREVNAR [Concomitant]
     Active Substance: PNEUMOCOCCAL 7-VALENT CONJUGATE VACCINE (DIPHTHERIA CRM197 PROTEIN)
     Indication: IMMUNISATION
     Dosage: 0.5 ML, UNK
     Dates: start: 20160926
  18. TRAZODONE HYDROCHLORIDE. [Concomitant]
     Active Substance: TRAZODONE HYDROCHLORIDE
     Dosage: 50 MG, 1X/DAY (1 TABLET AT BEDTIME)
     Route: 048
     Dates: start: 20151217

REACTIONS (13)
  - Thrombosis [Unknown]
  - Neuropathy peripheral [Recovering/Resolving]
  - Suicidal ideation [Unknown]
  - Insomnia [Not Recovered/Not Resolved]
  - Weight decreased [Unknown]
  - Product use issue [Unknown]
  - Musculoskeletal disorder [Recovered/Resolved]
  - Condition aggravated [Recovering/Resolving]
  - Weight increased [Unknown]
  - Intentional product misuse [Unknown]
  - Hunger [Unknown]
  - Cardiac arrest [Recovered/Resolved]
  - Back disorder [Recovering/Resolving]

NARRATIVE: CASE EVENT DATE: 20120423
